FAERS Safety Report 6406057-0 (Version None)
Quarter: 2009Q4

REPORT INFORMATION
  Report Type: 
  Country: None (occurrence: None)
  Receive Date: 20091019
  Receipt Date: 20091009
  Transmission Date: 20100525
  Serious: No
  Sender: FDA-Public Use
  Company Number: US-B.I. PHARMACEUTICALS,INC./RIDGEFIELD-2009-BP-11835BP

PATIENT
  Sex: Female

DRUGS (3)
  1. SPIRIVA [Suspect]
     Indication: CHRONIC OBSTRUCTIVE PULMONARY DISEASE
     Dosage: 18 MCG
     Route: 055
     Dates: start: 20040101
  2. METHIMAZOLE [Concomitant]
     Indication: HYPERTHYROIDISM
  3. METHIMAZOLE [Concomitant]
     Indication: BASEDOW'S DISEASE

REACTIONS (3)
  - EYE HAEMORRHAGE [None]
  - PHOTOPHOBIA [None]
  - RETINAL SCAR [None]
